FAERS Safety Report 7113673-X (Version None)
Quarter: 2010Q4

REPORT INFORMATION
  Report Type: 
  Country: None (occurrence: None)
  Receive Date: 20101119
  Receipt Date: 20101109
  Transmission Date: 20110411
  Serious: Yes (Other)
  Sender: FDA-Public Use
  Company Number: TR-GENZYME-THYM-1002055

PATIENT
  Age: 38 Year
  Sex: Male

DRUGS (9)
  1. THYMOGLOBULIN [Suspect]
     Indication: PROPHYLAXIS AGAINST TRANSPLANT REJECTION
     Dosage: 3 MG/KG, UNK
  2. PREDNISOLONE [Concomitant]
     Indication: PROPHYLAXIS AGAINST TRANSPLANT REJECTION
  3. MYCOPHENOLATE MOFETIL [Concomitant]
     Indication: PROPHYLAXIS AGAINST TRANSPLANT REJECTION
  4. TACROLIMUS [Concomitant]
     Indication: IMMUNOSUPPRESSION
  5. PYRIDOXINE HCL [Concomitant]
     Indication: PROPHYLAXIS
     Dosage: 10 MG/KG, UNK
  6. MAGNESIUM CITRATE [Concomitant]
     Indication: PROPHYLAXIS
     Dosage: 60 MG/KG, UNK
  7. PHOSPHATE [Concomitant]
     Indication: PROPHYLAXIS
     Dosage: UNK
  8. ATENOLOL [Concomitant]
     Indication: PROPHYLAXIS
     Dosage: 50 MG, UNK
  9. HYDROCHLOROTHIAZIDE [Concomitant]
     Indication: PROPHYLAXIS
     Dosage: 12.5 MG, UNK

REACTIONS (2)
  - HAEMATOMA [None]
  - HYPEROXALURIA [None]
